FAERS Safety Report 17061014 (Version 1)
Quarter: 2019Q4

REPORT INFORMATION
  Report Type: Spontaneous
  Country: NL (occurrence: NL)
  Receive Date: 20191121
  Receipt Date: 20191121
  Transmission Date: 20200122
  Serious: Yes (Other)
  Sender: FDA-Public Use
  Company Number: NL-MYLANLABS-2019M1111870

PATIENT
  Age: 81 Year
  Sex: Male
  Weight: 71 kg

DRUGS (8)
  1. QUETIAPINE. [Suspect]
     Active Substance: QUETIAPINE
     Indication: DEPRESSED MOOD
     Dosage: 1DD 25MG (25MG, QD)
     Route: 048
     Dates: start: 20190722, end: 20190806
  2. QUETIAPINE. [Suspect]
     Active Substance: QUETIAPINE
     Indication: ANXIETY
  3. CITALOPRAM [Concomitant]
     Active Substance: CITALOPRAM HYDROBROMIDE
     Dosage: 1DD20MG (20MG, QD)
  4. CYANOCOBALAMINE [Concomitant]
     Active Substance: CYANOCOBALAMIN
     Dosage: 1DD 1000MCG. (1000MCG, QD)
  5. PANTOZOL [Concomitant]
     Active Substance: PANTOPRAZOLE SODIUM
     Dosage: 2DD 40MG (40MG, BID)
  6. QUETIAPINE. [Suspect]
     Active Substance: QUETIAPINE
     Indication: INSOMNIA
  7. HYDROCHLOORTHIAZIDE [Concomitant]
     Active Substance: HYDROCHLOROTHIAZIDE
     Dosage: 1DD12.5MG (12MG, QD)
  8. OXAZEPAM. [Concomitant]
     Active Substance: OXAZEPAM
     Dosage: 1DD10MG (10MG, QD)

REACTIONS (2)
  - Diarrhoea [Recovering/Resolving]
  - Hypokalaemia [Unknown]

NARRATIVE: CASE EVENT DATE: 20190726
